FAERS Safety Report 16903143 (Version 5)
Quarter: 2022Q4

REPORT INFORMATION
  Report Type: Report from Study
  Country: US (occurrence: None)
  Receive Date: 20191010
  Receipt Date: 20221013
  Transmission Date: 20230113
  Serious: Yes (Hospitalization, Other)
  Sender: FDA-Public Use
  Company Number: US-ROCHE-2171648

PATIENT
  Age: 66 Year
  Sex: Male
  Weight: 91.8 kg

DRUGS (4)
  1. ATEZOLIZUMAB [Suspect]
     Active Substance: ATEZOLIZUMAB
     Indication: Bladder cancer
     Dosage: THIS WAS ALSO THE MOST RECENT DOSE?CYCLE = 21 DAYS, OVER 60 MINUTES ON DAY 1?THE LAST DOSE OF ATEZOL
     Route: 041
     Dates: start: 20180723, end: 20180824
  2. ATEZOLIZUMAB [Suspect]
     Active Substance: ATEZOLIZUMAB
     Dosage: THE LAST DOSE OF ATEZOLIZUMAB ON 24/AUG/ 2018 (CYCLE 2, DAY 1)
     Route: 042
     Dates: start: 20180824, end: 20180824
  3. ERIBULIN MESYLATE [Suspect]
     Active Substance: ERIBULIN MESYLATE
     Indication: Bladder cancer
     Dosage: THIS WAS ALSO THE MOST RECENT DOSE, DAY 08?THE LAST DOSE OF ERIBULIN MESYLATE ON 29/AUG/ 2018 (CYCLE
     Route: 042
     Dates: start: 20180723
  4. ERIBULIN MESYLATE [Suspect]
     Active Substance: ERIBULIN MESYLATE
     Dosage: THE LAST DOSE OF ERIBULIN MESYLATE ON 29/AUG/ 2018 (CYCLE 2, DAY 6).
     Route: 042
     Dates: start: 20180824, end: 20180829

REACTIONS (14)
  - Neck pain [Recovered/Resolved with Sequelae]
  - Blood creatinine increased [Unknown]
  - Acute kidney injury [Unknown]
  - Decreased appetite [Unknown]
  - Hyponatraemia [Unknown]
  - Anaemia [Unknown]
  - Neutrophil count decreased [Unknown]
  - White blood cell count decreased [Unknown]
  - Spinal fracture [Recovered/Resolved with Sequelae]
  - Nausea [Unknown]
  - Muscular weakness [Unknown]
  - Dehydration [Unknown]
  - Nausea [Unknown]
  - Anaemia [Unknown]

NARRATIVE: CASE EVENT DATE: 20180727
